FAERS Safety Report 13101851 (Version 1)
Quarter: 2017Q1

REPORT INFORMATION
  Report Type: Spontaneous
  Country: US (occurrence: US)
  Receive Date: 20170109
  Receipt Date: 20170109
  Transmission Date: 20170428
  Serious: Yes (Other)
  Sender: FDA-Public Use
  Company Number: None

PATIENT
  Age: 58 Year
  Sex: Male
  Weight: 114.86 kg

DRUGS (1)
  1. SERTRALINE [Suspect]
     Active Substance: SERTRALINE HYDROCHLORIDE
     Indication: DEPRESSION POSTOPERATIVE
     Route: 048

REACTIONS (9)
  - Mood swings [None]
  - Headache [None]
  - Disturbance in attention [None]
  - Irritability [None]
  - Paranoia [None]
  - Impaired work ability [None]
  - Crying [None]
  - Paraesthesia [None]
  - Suicidal ideation [None]

NARRATIVE: CASE EVENT DATE: 20170102
